FAERS Safety Report 11347200 (Version 1)
Quarter: 2015Q3

REPORT INFORMATION
  Report Type: Spontaneous
  Country: US (occurrence: US)
  Receive Date: 20150803
  Receipt Date: 20150803
  Transmission Date: 20151125
  Serious: No
  Sender: FDA-Public Use
  Company Number: US-ELI_LILLY_AND_COMPANY-US201103006654

PATIENT
  Age: 19 Year
  Sex: Female

DRUGS (3)
  1. ZYPREXA [Suspect]
     Active Substance: OLANZAPINE
     Indication: SCHIZOPHRENIA
     Dosage: 300 MG,  EVERY TWO WEEKS
     Dates: start: 201101
  2. WELLBUTRIN [Concomitant]
     Active Substance: BUPROPION HYDROCHLORIDE
  3. ZYPREXA [Suspect]
     Active Substance: OLANZAPINE
     Dosage: 405 MG, UNK

REACTIONS (2)
  - Fatigue [Unknown]
  - Lethargy [Unknown]
